FAERS Safety Report 17464421 (Version 2)
Quarter: 2020Q1

REPORT INFORMATION
  Report Type: Spontaneous
  Country: ES (occurrence: ES)
  Receive Date: 20200226
  Receipt Date: 20200227
  Transmission Date: 20200409
  Serious: Yes (Hospitalization, Other)
  Sender: FDA-Public Use
  Company Number: ES-PFIZER INC-2020081415

PATIENT
  Age: 40 Year
  Sex: Male

DRUGS (6)
  1. NAPROXEN. [Interacting]
     Active Substance: NAPROXEN
     Dosage: UP TO 1,500 MG
     Route: 048
  2. DULOXETINE. [Interacting]
     Active Substance: DULOXETINE
     Dosage: 60 MG, DAILY
     Route: 048
  3. NAPROXEN. [Interacting]
     Active Substance: NAPROXEN
     Dosage: UP TO 1,500 MG
     Route: 048
  4. METAMIZOLE [Concomitant]
     Active Substance: METAMIZOLE
     Dosage: 1725 MG, DAILY
     Route: 048
  5. DESVENLAFAXINE SUCCINATE MONOHYDRATE [Suspect]
     Active Substance: DESVENLAFAXINE SUCCINATE
     Dosage: 400 MG, DAILY
  6. NAPROXEN. [Interacting]
     Active Substance: NAPROXEN
     Dosage: UP TO 1,500 MG
     Route: 048

REACTIONS (4)
  - Duodenal ulcer [Unknown]
  - Drug interaction [Unknown]
  - Gastrointestinal haemorrhage [Unknown]
  - Overdose [Unknown]
